FAERS Safety Report 13439595 (Version 2)
Quarter: 2017Q2

REPORT INFORMATION
  Report Type: Spontaneous
  Country: JP (occurrence: JP)
  Receive Date: 20170413
  Receipt Date: 20170425
  Transmission Date: 20170830
  Serious: Yes (Hospitalization)
  Sender: FDA-Public Use
  Company Number: PHJP2017JP007332

PATIENT
  Age: 85 Year
  Sex: Male
  Weight: 52 kg

DRUGS (12)
  1. FP-OD [Concomitant]
     Active Substance: SELEGILINE HYDROCHLORIDE
     Indication: PRODUCT USED FOR UNKNOWN INDICATION
     Dosage: 2.5 MG, QD
     Route: 048
     Dates: start: 20141208
  2. FERROMIA [Concomitant]
     Active Substance: FERROUS CITRATE
     Indication: PRODUCT USED FOR UNKNOWN INDICATION
     Dosage: 100 MG, QD
     Route: 048
     Dates: start: 20141208
  3. DOPACOL [Concomitant]
     Active Substance: CARBIDOPA\LEVODOPA
     Dosage: 1 DF, UNK
     Route: 048
     Dates: start: 20141208
  4. NEUPRO [Suspect]
     Active Substance: ROTIGOTINE
     Indication: PARKINSON^S DISEASE
     Dosage: 2 DF, UNK
     Route: 062
     Dates: start: 20141208
  5. DOPACOL [Concomitant]
     Active Substance: CARBIDOPA\LEVODOPA
     Indication: PRODUCT USED FOR UNKNOWN INDICATION
     Dosage: LEVODOPA 100 MG AND CARBIDOPA 10 MG, TID
     Route: 048
     Dates: start: 20141208
  6. BI SIFROL [Suspect]
     Active Substance: PRAMIPEXOLE
     Dosage: 1 MG, UNK
     Route: 048
     Dates: start: 20170301, end: 20170405
  7. MOSAPRIDE [Concomitant]
     Active Substance: MOSAPRIDE
     Indication: PRODUCT USED FOR UNKNOWN INDICATION
     Dosage: 5 MG, TID
     Route: 048
     Dates: start: 20141208
  8. BI SIFROL [Suspect]
     Active Substance: PRAMIPEXOLE
     Indication: PARKINSON^S DISEASE
     Dosage: 0.5 MG, TID
     Route: 048
     Dates: start: 20141208, end: 20170228
  9. DOPACOL [Concomitant]
     Active Substance: CARBIDOPA\LEVODOPA
     Dosage: 0.5 DF, UNK
     Route: 048
     Dates: start: 20141208
  10. DROXIDOPA [Concomitant]
     Active Substance: DROXIDOPA
     Indication: PRODUCT USED FOR UNKNOWN INDICATION
     Dosage: 100 MG, TID
     Route: 048
     Dates: start: 20141208
  11. COMTAN [Suspect]
     Active Substance: ENTACAPONE
     Indication: PARKINSON^S DISEASE
     Dosage: 150 MG, TID
     Route: 048
     Dates: start: 20141208, end: 20170228
  12. COMTAN [Suspect]
     Active Substance: ENTACAPONE
     Dosage: 400 MG, UNK
     Route: 048
     Dates: start: 20170301, end: 20170405

REACTIONS (4)
  - Rhabdomyolysis [Recovered/Resolved]
  - Neuroleptic malignant syndrome [Recovered/Resolved]
  - Pneumonia [Recovered/Resolved]
  - Decreased appetite [Recovered/Resolved]

NARRATIVE: CASE EVENT DATE: 20170301
